FAERS Safety Report 9731852 (Version 1)
Quarter: 2013Q4

REPORT INFORMATION
  Report Type: Report from Study
  Country: US (occurrence: US)
  Receive Date: 20131204
  Receipt Date: 20131204
  Transmission Date: 20140711
  Serious: Yes (Other)
  Sender: FDA-Public Use
  Company Number: US-ELI_LILLY_AND_COMPANY-US201311007832

PATIENT
  Sex: Female

DRUGS (3)
  1. DULOXETINE HYDROCHLORIDE [Suspect]
     Indication: ANXIETY
     Dosage: 20 MG, BID
     Route: 065
     Dates: start: 2007, end: 20131118
  2. DULOXETINE HYDROCHLORIDE [Suspect]
     Indication: DEPRESSION
  3. DULOXETINE HYDROCHLORIDE [Suspect]
     Indication: PANIC ATTACK

REACTIONS (6)
  - Suicidal ideation [Unknown]
  - Paraesthesia [Unknown]
  - Visual impairment [Unknown]
  - Crying [Unknown]
  - Social avoidant behaviour [Unknown]
  - Drug withdrawal syndrome [Unknown]
